FAERS Safety Report 13635441 (Version 1)
Quarter: 2017Q2

REPORT INFORMATION
  Report Type: Spontaneous
  Country: US (occurrence: US)
  Receive Date: 20170608
  Receipt Date: 20170608
  Transmission Date: 20170830
  Serious: Yes (Other)
  Sender: FDA-Public Use
  Company Number: None

PATIENT
  Age: 24 Year
  Sex: Female
  Weight: 58.95 kg

DRUGS (3)
  1. TEAS [Concomitant]
  2. ORGANIC FOOD [Concomitant]
  3. PLAN B ONE-STEP [Suspect]
     Active Substance: LEVONORGESTREL
     Indication: PRODUCT USED FOR UNKNOWN INDICATION
     Route: 048
     Dates: start: 20170521, end: 20170521

REACTIONS (1)
  - Epistaxis [None]

NARRATIVE: CASE EVENT DATE: 20170521
